FAERS Safety Report 17005190 (Version 2)
Quarter: 2019Q4

REPORT INFORMATION
  Report Type: Report from Study
  Country: GB (occurrence: GB)
  Receive Date: 20191107
  Receipt Date: 20191125
  Transmission Date: 20200122
  Serious: Yes (Other)
  Sender: FDA-Public Use
  Company Number: GB-JNJFOC-20191041916

PATIENT
  Age: 58 Year
  Sex: Male
  Weight: 120 kg

DRUGS (3)
  1. TRAMADOL. [Concomitant]
     Active Substance: TRAMADOL
     Dates: start: 20100715
  2. BACLOFEN. [Concomitant]
     Active Substance: BACLOFEN
     Dates: start: 20100715
  3. STELARA [Suspect]
     Active Substance: USTEKINUMAB
     Indication: PSORIASIS
     Route: 058
     Dates: start: 20141105, end: 20170615

REACTIONS (3)
  - Salivary gland cancer [Not Recovered/Not Resolved]
  - Chronic lymphocytic leukaemia [Not Recovered/Not Resolved]
  - Malignant lymphoid neoplasm [Not Recovered/Not Resolved]

NARRATIVE: CASE EVENT DATE: 20170524
